FAERS Safety Report 23695124 (Version 1)
Quarter: 2024Q2

REPORT INFORMATION
  Report Type: Other
  Country: ES (occurrence: ES)
  Receive Date: 20240402
  Receipt Date: 20240402
  Transmission Date: 20240716
  Serious: Yes (Other)
  Sender: FDA-Public Use
  Company Number: ES-ROCHE-2445164

PATIENT
  Age: 78 Year
  Sex: Male

DRUGS (8)
  1. RITUXIMAB [Suspect]
     Active Substance: RITUXIMAB
     Indication: Extranodal marginal zone B-cell lymphoma (MALT type)
     Route: 042
  2. BENDAMUSTINE [Suspect]
     Active Substance: BENDAMUSTINE
     Indication: Extranodal marginal zone B-cell lymphoma (MALT type)
     Route: 065
  3. SALICYLIC ACID [Concomitant]
     Active Substance: SALICYLIC ACID
  4. RANITIDINE [Concomitant]
     Active Substance: RANITIDINE
  5. MONTELUKAST [Concomitant]
     Active Substance: MONTELUKAST SODIUM
  6. DEXCHLORPHENIRAMINE [Concomitant]
     Active Substance: DEXCHLORPHENIRAMINE
  7. METHYLPREDNISOLONE [Concomitant]
     Active Substance: METHYLPREDNISOLONE
  8. OMALIZUMAB [Concomitant]
     Active Substance: OMALIZUMAB
     Indication: Immune tolerance induction

REACTIONS (2)
  - Hypersensitivity [Unknown]
  - Off label use [Unknown]
